FAERS Safety Report 25824700 (Version 1)
Quarter: 2025Q3

REPORT INFORMATION
  Report Type: Spontaneous
  Country: US (occurrence: US)
  Receive Date: 20250919
  Receipt Date: 20250919
  Transmission Date: 20251021
  Serious: No
  Sender: ALNYLAM PHARMACEUTICALS
  Company Number: US-ALNYLAM PHARMACEUTICALS, INC.-ALN-2025-005694

PATIENT

DRUGS (1)
  1. GIVLAARI [Suspect]
     Active Substance: GIVOSIRAN SODIUM
     Indication: Porphyria
     Route: 065

REACTIONS (9)
  - Neuropathy peripheral [Not Recovered/Not Resolved]
  - Paralysis [Unknown]
  - Renal impairment [Recovered/Resolved]
  - Nausea [Unknown]
  - Asthenia [Unknown]
  - Weight increased [Unknown]
  - Dizziness [Unknown]
  - Palpitations [Unknown]
  - Intentional product use issue [Unknown]
